FAERS Safety Report 8026202-3 (Version None)
Quarter: 2012Q1

REPORT INFORMATION
  Report Type: 
  Country: None (occurrence: None)
  Receive Date: 20120105
  Receipt Date: 20110216
  Transmission Date: 20120608
  Serious: No
  Sender: FDA-Public Use
  Company Number: US-ABBOTT-11P-163-0706689-00

PATIENT
  Sex: Female
  Weight: 54.48 kg

DRUGS (2)
  1. SYNTHROID [Suspect]
     Indication: AUTOIMMUNE THYROIDITIS
     Dosage: ALTERNATES 100MCG AND 88MG QOD
     Dates: start: 20070201
  2. SYNTHROID [Suspect]
     Indication: AUTOIMMUNE THYROIDITIS
     Dosage: ALTERNATES 100MCG AND 88MCG QOD
     Dates: start: 20070201

REACTIONS (4)
  - FATIGUE [None]
  - WEIGHT DECREASED [None]
  - MUSCLE SPASMS [None]
  - BLOOD THYROID STIMULATING HORMONE INCREASED [None]
